FAERS Safety Report 16328152 (Version 1)
Quarter: 2019Q2

REPORT INFORMATION
  Report Type: Spontaneous
  Country: FR (occurrence: FR)
  Receive Date: 20190518
  Receipt Date: 20190518
  Transmission Date: 20190711
  Serious: Yes (Hospitalization)
  Sender: FDA-Public Use
  Company Number: FR-AUROBINDO-AUR-APL-2019-025796

PATIENT

DRUGS (1)
  1. ENTECAVIR FILM COATED TABLETS [Suspect]
     Active Substance: ENTECAVIR
     Indication: CHRONIC HEPATITIS B
     Dosage: 0.5 MILLIGRAM, ONCE A DAY
     Route: 048

REACTIONS (2)
  - Prostatic adenoma [Unknown]
  - Urinary tract infection [Recovering/Resolving]
